FAERS Safety Report 16446517 (Version 2)
Quarter: 2019Q4

REPORT INFORMATION
  Report Type: Spontaneous
  Country: IT (occurrence: IT)
  Receive Date: 20190618
  Receipt Date: 20191220
  Transmission Date: 20200122
  Serious: Yes (Hospitalization)
  Sender: FDA-Public Use
  Company Number: IT-PFIZER INC-2019255538

PATIENT
  Age: 15 Year
  Sex: Female

DRUGS (3)
  1. PIPERACILLIN AND TAZOBACTAM [Suspect]
     Active Substance: PIPERACILLIN SODIUM\TAZOBACTAM SODIUM
     Indication: TOOTH ABSCESS
     Dosage: 13.5 MG, 1X/DAY
     Route: 042
     Dates: start: 20190517
  2. VANCOMICINA HIKMA [Suspect]
     Active Substance: VANCOMYCIN HYDROCHLORIDE
     Indication: TOOTH ABSCESS
     Dosage: 2000 MG, 1X/DAY
     Route: 042
     Dates: start: 20190517, end: 20190518
  3. CLINDAMYCIN PHOSPHATE HIKMA [Concomitant]
     Dosage: 2400 MG, UNK

REACTIONS (3)
  - Erythema [Recovered/Resolved]
  - Product use in unapproved indication [Unknown]
  - Off label use [Unknown]

NARRATIVE: CASE EVENT DATE: 20190518
